FAERS Safety Report 17649955 (Version 1)
Quarter: 2020Q2

REPORT INFORMATION
  Report Type: Spontaneous
  Country: BR (occurrence: BR)
  Receive Date: 20200408
  Receipt Date: 20200408
  Transmission Date: 20200713
  Serious: Yes (Other)
  Sender: FDA-Public Use
  Company Number: BR-009507513-2004BRA001261

PATIENT
  Sex: Female
  Weight: 55 kg

DRUGS (1)
  1. NUVARING [Suspect]
     Active Substance: ETHINYL ESTRADIOL\ETONOGESTREL
     Indication: CONTRACEPTION
     Dosage: 1 RING FOR 3 WEEKS
     Route: 067
     Dates: start: 2005, end: 20200330

REACTIONS (8)
  - Incorrect product administration duration [Unknown]
  - Vulvovaginal injury [Unknown]
  - Device expulsion [Unknown]
  - Medical device site rash [Unknown]
  - Hypothyroidism [Unknown]
  - Product physical issue [Unknown]
  - Intentional medical device removal by patient [Unknown]
  - Vulvovaginal burning sensation [Recovered/Resolved]

NARRATIVE: CASE EVENT DATE: 2005
